FAERS Safety Report 6391922-3 (Version None)
Quarter: 2009Q4

REPORT INFORMATION
  Report Type: 
  Country: None (occurrence: None)
  Receive Date: 20091007
  Receipt Date: 20091005
  Transmission Date: 20100525
  Serious: Yes (Death)
  Sender: FDA-Public Use
  Company Number: US-GENENTECH-291682

PATIENT

DRUGS (1)
  1. TNKASE [Suspect]
     Indication: ISCHAEMIC STROKE
     Dosage: 67 UNK, SINGLE
     Route: 042

REACTIONS (2)
  - DEATH [None]
  - MEDICATION ERROR [None]
